FAERS Safety Report 6233953-X (Version None)
Quarter: 2009Q2

REPORT INFORMATION
  Report Type: 
  Country: None (occurrence: None)
  Receive Date: 20090618
  Receipt Date: 20090610
  Transmission Date: 20091009
  Serious: Yes (Other)
  Sender: FDA-Public Use
  Company Number: IT-RANBAXY-2009US-24750

PATIENT

DRUGS (3)
  1. PHENOBARBITAL TAB [Suspect]
     Indication: EPILEPSY
     Dosage: UNK, UNK
     Route: 065
     Dates: start: 20070301
  2. CIPROFLOXACIN [Suspect]
     Indication: OROPHARYNGEAL PAIN
     Route: 065
  3. CIPROFLOXACIN [Suspect]
     Indication: ODYNOPHAGIA

REACTIONS (7)
  - CONJUNCTIVITIS [None]
  - ODYNOPHAGIA [None]
  - OROPHARYNGEAL PAIN [None]
  - STEVENS-JOHNSON SYNDROME [None]
  - STOMATITIS [None]
  - TOXIC EPIDERMAL NECROLYSIS [None]
  - VULVOVAGINAL BURNING SENSATION [None]
